FAERS Safety Report 20781574 (Version 1)
Quarter: 2022Q2

REPORT INFORMATION
  Report Type: Spontaneous
  Country: US (occurrence: US)
  Receive Date: 20220504
  Receipt Date: 20220504
  Transmission Date: 20220720
  Serious: Yes (Death, Hospitalization, Other)
  Sender: FDA-Public Use
  Company Number: US-LUPIN PHARMACEUTICALS INC.-2022-06474

PATIENT
  Age: 43 Year
  Sex: Male

DRUGS (1)
  1. PHENYTOIN SODIUM [Suspect]
     Active Substance: PHENYTOIN SODIUM
     Indication: Drug therapy
     Dosage: UNK
     Route: 065

REACTIONS (4)
  - Hepatocellular injury [Fatal]
  - Acute hepatic failure [Unknown]
  - Coagulopathy [Unknown]
  - Acute kidney injury [Unknown]
